FAERS Safety Report 23223717 (Version 1)
Quarter: 2023Q4

REPORT INFORMATION
  Report Type: Other
  Country: FR (occurrence: FR)
  Receive Date: 20231124
  Receipt Date: 20231124
  Transmission Date: 20240110
  Serious: Yes (Hospitalization)
  Sender: FDA-Public Use
  Company Number: None

PATIENT

DRUGS (3)
  1. BISOPROLOL [Suspect]
     Active Substance: BISOPROLOL\BISOPROLOL FUMARATE
     Indication: Myocardial ischaemia
     Dosage: 2.5 MILLIGRAM, BID
     Route: 064
     Dates: start: 20230212, end: 20231015
  2. LOVENOX [Suspect]
     Active Substance: ENOXAPARIN SODIUM
     Indication: Myocardial ischaemia
     Dosage: 1 DOSAGE FORM, QD
     Route: 064
     Dates: start: 20230212, end: 20231015
  3. ASPIRIN [Suspect]
     Active Substance: ASPIRIN
     Indication: Myocardial ischaemia
     Dosage: 100 MILLIGRAM, QD
     Route: 064
     Dates: start: 20230212, end: 20231006

REACTIONS (2)
  - Foetal growth restriction [Recovering/Resolving]
  - Hypoglycaemia [Recovered/Resolved]

NARRATIVE: CASE EVENT DATE: 20231006
